FAERS Safety Report 9300557 (Version 1)
Quarter: 2013Q2

REPORT INFORMATION
  Report Type: Spontaneous
  Country: US (occurrence: None)
  Receive Date: 20130520
  Receipt Date: 20130520
  Transmission Date: 20140414
  Serious: Yes (Death)
  Sender: FDA-Public Use
  Company Number: None

PATIENT
  Age: 63 Year
  Sex: Male
  Weight: 99.79 kg

DRUGS (1)
  1. CITALOPRAM 10 MG INTERNATIONAL LABS, INC [Suspect]
     Dosage: 2 TABLETS DAILY PO

REACTIONS (1)
  - Completed suicide [None]
